FAERS Safety Report 12980808 (Version 1)
Quarter: 2016Q4

REPORT INFORMATION
  Report Type: Spontaneous
  Country: US (occurrence: US)
  Receive Date: 20161128
  Receipt Date: 20161128
  Transmission Date: 20170207
  Serious: Yes (Hospitalization)
  Sender: FDA-Public Use
  Company Number: US-RELYPSA-RLY2016003954

PATIENT
  Age: 53 Year
  Sex: Male

DRUGS (13)
  1. MYCOPHENOLATE [Concomitant]
     Active Substance: MYCOPHENOLIC ACID
  2. METOCLOPRAM [Concomitant]
     Active Substance: METOCLOPRAMIDE
  3. VELTASSA [Suspect]
     Active Substance: PATIROMER
     Indication: HYPERKALAEMIA
     Dosage: 8.4 G, QD
     Route: 048
     Dates: start: 20160420
  4. TRADJENTA [Concomitant]
     Active Substance: LINAGLIPTIN
  5. MAGNESIUM [Concomitant]
     Active Substance: MAGNESIUM
  6. PANTOPRAZOLE [Concomitant]
     Active Substance: PANTOPRAZOLE SODIUM
  7. NIFEDICAL XL [Concomitant]
     Active Substance: NIFEDIPINE
  8. CYCLOSPORINE. [Concomitant]
     Active Substance: CYCLOSPORINE
  9. MULTIVITAMIN [Concomitant]
     Active Substance: VITAMINS
  10. FISH OIL [Concomitant]
     Active Substance: FISH OIL
  11. PRAVASTATIN. [Concomitant]
     Active Substance: PRAVASTATIN
  12. MIRTAZAPINE. [Concomitant]
     Active Substance: MIRTAZAPINE
  13. IRON [Concomitant]
     Active Substance: IRON

REACTIONS (1)
  - Chest pain [Unknown]

NARRATIVE: CASE EVENT DATE: 201611
